FAERS Safety Report 9563777 (Version 1)
Quarter: 2013Q1

REPORT INFORMATION
  Report Type: Spontaneous
  Country: US (occurrence: None)
  Receive Date: 20121214
  Receipt Date: 20121214
  Transmission Date: 20140127
  Serious: Yes (Hospitalization)
  Sender: FDA-Public Use
  Company Number: 1110USA03825

PATIENT
  Age: 67 Year
  Sex: Female
  Weight: 90.3 kg

DRUGS (6)
  1. JANUVIA (SITAGLIPTIN PHOSPHATE) FILM-COATED TABLET [Suspect]
     Indication: TYPE 2 DIABETES MELLITUS
     Route: 048
     Dates: end: 20111005
  2. PRINZIDE (LISINOPRIL (+) HYDROCHLOROTHIAZIDE) TABLET [Suspect]
     Indication: HYPERTENSION
     Dosage: 20/12.5
     Dates: end: 20111004
  3. NABUMETONE [Concomitant]
  4. PRILOSEC [Concomitant]
  5. PRINIVIL (LISINOPRIL) [Concomitant]
  6. PHENERGAN (PROMETHAZINE HYDROCHLORIDE) [Concomitant]

REACTIONS (5)
  - Pancreatitis acute [None]
  - Food poisoning [None]
  - Diarrhoea [None]
  - Splenomegaly [None]
  - Gallbladder enlargement [None]
